FAERS Safety Report 16109047 (Version 1)
Quarter: 2019Q1

REPORT INFORMATION
  Report Type: Spontaneous
  Country: US (occurrence: US)
  Receive Date: 20190323
  Receipt Date: 20190323
  Transmission Date: 20190418
  Serious: No
  Sender: FDA-Public Use
  Company Number: US-THERAPEUTICSMD-2019TMD00070

PATIENT
  Age: 75 Year
  Sex: Female
  Weight: 68.03 kg

DRUGS (2)
  1. IMVEXXY [Suspect]
     Active Substance: ESTRADIOL
     Indication: VULVOVAGINAL DRYNESS
     Dosage: 1 DOSAGE UNITS, 1X/DAY BEFORE BED
     Route: 067
     Dates: start: 20190114, end: 20190116
  2. UNSPECIFIED MEDICATIONS FOR HEART [Concomitant]

REACTIONS (7)
  - Vulvovaginal swelling [Recovering/Resolving]
  - Rash erythematous [Recovered/Resolved]
  - Off label use [Recovered/Resolved]
  - Vulvovaginal rash [Recovered/Resolved]
  - Vulvovaginal pain [Recovered/Resolved]
  - Drug hypersensitivity [Unknown]
  - Vulvovaginal burning sensation [Recovered/Resolved]

NARRATIVE: CASE EVENT DATE: 201901
